FAERS Safety Report 5446536-6 (Version None)
Quarter: 2007Q3

REPORT INFORMATION
  Report Type: 
  Country: None (occurrence: None)
  Receive Date: 20070907
  Receipt Date: 20070827
  Transmission Date: 20080115
  Serious: Yes (Other)
  Sender: FDA-Public Use
  Company Number: US-PFIZER INC-2007071771

PATIENT
  Sex: Female
  Weight: 125 kg

DRUGS (7)
  1. LYRICA [Suspect]
     Indication: DIABETES MELLITUS
     Dates: start: 20060101, end: 20060101
  2. LOTREL [Concomitant]
     Indication: HYPERTENSION
     Dosage: TEXT:10/20MG
  3. CELEXA [Concomitant]
  4. TRAZODONE HCL [Concomitant]
  5. ARTHROTEC [Concomitant]
  6. BUSPAR [Concomitant]
  7. ACTOS [Concomitant]

REACTIONS (3)
  - ACTIVITIES OF DAILY LIVING IMPAIRED [None]
  - DIZZINESS [None]
  - FIBROMYALGIA [None]
